FAERS Safety Report 10157262 (Version 1)
Quarter: 2014Q2

REPORT INFORMATION
  Report Type: Spontaneous
  Country: US (occurrence: US)
  Receive Date: 20140507
  Receipt Date: 20140507
  Transmission Date: 20141212
  Serious: Yes (Death)
  Sender: FDA-Public Use
  Company Number: US-009507513-1405USA002820

PATIENT
  Age: 76 Year
  Sex: Female

DRUGS (1)
  1. SYLATRON [Suspect]
     Dosage: UNK

REACTIONS (1)
  - Death [Fatal]
